FAERS Safety Report 19361188 (Version 4)
Quarter: 2021Q3

REPORT INFORMATION
  Report Type: Report from Study
  Country: IT (occurrence: IT)
  Receive Date: 20210601
  Receipt Date: 20210713
  Transmission Date: 20211014
  Serious: Yes (Death, Life-Threatening, Hospitalization)
  Sender: FDA-Public Use
  Company Number: IT-PFIZER INC-2021605582

PATIENT
  Age: 45 Year
  Sex: Male

DRUGS (3)
  1. DAUNORUBICIN HCL [Suspect]
     Active Substance: DAUNORUBICIN HYDROCHLORIDE
     Dosage: 90 MG, DAILY
     Route: 042
     Dates: start: 20210507
  2. GEMTUZUMAB OZOGAMICIN [Suspect]
     Active Substance: GEMTUZUMAB OZOGAMICIN
     Dosage: 5 MG, DAILY
     Route: 042
     Dates: start: 20210504
  3. CYTARABINE. [Suspect]
     Active Substance: CYTARABINE
     Dosage: 1800 MG, DAILY
     Route: 042
     Dates: start: 20210504

REACTIONS (1)
  - Hepatic failure [Fatal]

NARRATIVE: CASE EVENT DATE: 20210512
